FAERS Safety Report 6189096-7 (Version None)
Quarter: 2009Q2

REPORT INFORMATION
  Report Type: 
  Country: None (occurrence: None)
  Receive Date: 20090513
  Receipt Date: 20090313
  Transmission Date: 20091009
  Serious: No
  Sender: FDA-Public Use
  Company Number: US-BAYER-200910834BCC

PATIENT
  Age: 45 Year
  Sex: Female
  Weight: 49 kg

DRUGS (1)
  1. ALEVE [Suspect]
     Indication: MUSCULOSKELETAL PAIN
     Dosage: TOTAL DAILY DOSE: 440 MG  UNIT DOSE: 220 MG
     Route: 048
     Dates: start: 20090312, end: 20090312

REACTIONS (3)
  - ABDOMINAL PAIN UPPER [None]
  - NAUSEA [None]
  - VOMITING [None]
